FAERS Safety Report 7284294-3 (Version None)
Quarter: 2011Q1

REPORT INFORMATION
  Report Type: 
  Country: None (occurrence: None)
  Receive Date: 20110131
  Receipt Date: 20110117
  Transmission Date: 20110831
  Serious: Yes (Hospitalization)
  Sender: FDA-Public Use
  Company Number: ACO_21499_2011

PATIENT
  Age: 63 Year
  Sex: Female
  Weight: 54.4 kg

DRUGS (6)
  1. DETROL [Concomitant]
  2. AMBIEN [Concomitant]
  3. AMPYRA [Suspect]
     Indication: GAIT DISTURBANCE
     Dosage: (10 MG, QD, ORAL) (10 MG, BID, ORAL) (10 MG, QD, ORAL)
     Route: 048
     Dates: start: 20100501, end: 20100101
  4. AMPYRA [Suspect]
     Indication: GAIT DISTURBANCE
     Dosage: (10 MG, QD, ORAL) (10 MG, BID, ORAL) (10 MG, QD, ORAL)
     Route: 048
     Dates: start: 20100101
  5. MIRAPEX [Concomitant]
  6. WELLBUTRIN [Concomitant]

REACTIONS (4)
  - INAPPROPRIATE SCHEDULE OF DRUG ADMINISTRATION [None]
  - HIP FRACTURE [None]
  - ASTHENIA [None]
  - FALL [None]
